FAERS Safety Report 10328931 (Version 1)
Quarter: 2014Q3

REPORT INFORMATION
  Report Type: Spontaneous
  Country: US (occurrence: None)
  Receive Date: 20140718
  Receipt Date: 20140718
  Transmission Date: 20150326
  Serious: Yes (Other)
  Sender: FDA-Public Use
  Company Number: None

PATIENT
  Age: 67 Year
  Sex: Male

DRUGS (1)
  1. EXJADE [Suspect]
     Active Substance: DEFERASIROX
     Indication: SIDEROBLASTIC ANAEMIA
     Route: 048
     Dates: start: 20131205

REACTIONS (2)
  - Urticaria [None]
  - Generalised erythema [None]

NARRATIVE: CASE EVENT DATE: 20140713
